FAERS Safety Report 21690014 (Version 2)
Quarter: 2022Q4

REPORT INFORMATION
  Report Type: Report from Study
  Country: US (occurrence: US)
  Receive Date: 20221206
  Receipt Date: 20221230
  Transmission Date: 20230113
  Serious: Yes (Death, Hospitalization, Other)
  Sender: FDA-Public Use
  Company Number: US-GW PHARMA-2022-US-037144

PATIENT
  Age: 22 Year
  Sex: Male

DRUGS (20)
  1. EPIDIOLEX [Suspect]
     Active Substance: CANNABIDIOL
     Indication: Lennox-Gastaut syndrome
     Dosage: 8 MILLILITER
     Route: 048
     Dates: start: 202112
  2. EPIDIOLEX [Suspect]
     Active Substance: CANNABIDIOL
     Dosage: 400 MILLIGRAM
     Dates: start: 20220803
  3. BACLOFEN [Concomitant]
     Active Substance: BACLOFEN
     Dosage: UNK
  4. CAPOFIN [Concomitant]
  5. CEFEPIME [Concomitant]
     Active Substance: CEFEPIME HYDROCHLORIDE
  6. DOMPERIDONE [Concomitant]
     Active Substance: DOMPERIDONE
  7. PHENOBARBITAL [Concomitant]
     Active Substance: PHENOBARBITAL
     Dosage: UNK
  8. ONFI [Concomitant]
     Active Substance: CLOBAZAM
  9. CLONAZEPAM [Concomitant]
     Active Substance: CLONAZEPAM
  10. DECADRON [Concomitant]
     Active Substance: DEXAMETHASONE
  11. DEPAKOTE [Concomitant]
     Active Substance: DIVALPROEX SODIUM
  12. COLACE [Concomitant]
     Active Substance: DOCUSATE SODIUM
  13. TOPAMAX [Concomitant]
     Active Substance: TOPIRAMATE
  14. LOPRESSOR [Concomitant]
     Active Substance: METOPROLOL TARTRATE
  15. SENNA LEAF [Concomitant]
     Active Substance: SENNA LEAF
  16. LONENE [Concomitant]
  17. PEPCID [Concomitant]
     Active Substance: FAMOTIDINE
  18. NERSET [Concomitant]
  19. NIMESULIDE [Concomitant]
     Active Substance: NIMESULIDE
  20. FENTANYL [Concomitant]
     Active Substance: FENTANYL
     Dosage: UNK

REACTIONS (1)
  - COVID-19 pneumonia [Fatal]

NARRATIVE: CASE EVENT DATE: 20220723
